FAERS Safety Report 12120298 (Version 1)
Quarter: 2016Q1

REPORT INFORMATION
  Report Type: Spontaneous
  Country: CH (occurrence: CH)
  Receive Date: 20160226
  Receipt Date: 20160226
  Transmission Date: 20160526
  Serious: Yes (Other)
  Sender: FDA-Public Use
  Company Number: CH-INDIVIOR LIMITED-INDV-088214-2016

PATIENT
  Age: 32 Year
  Sex: Female

DRUGS (2)
  1. SUBUTEX [Suspect]
     Active Substance: BUPRENORPHINE HYDROCHLORIDE
     Indication: DRUG DEPENDENCE
     Dosage: 12 MG DAILY
     Route: 065
     Dates: start: 201504
  2. RIVOTRIL [Concomitant]
     Active Substance: CLONAZEPAM
     Indication: DRUG DEPENDENCE
     Dosage: 2 MG, QD
     Route: 065
     Dates: start: 201504

REACTIONS (2)
  - Maternal exposure during pregnancy [Recovered/Resolved]
  - Premature delivery [Recovered/Resolved]

NARRATIVE: CASE EVENT DATE: 201504
